FAERS Safety Report 10770296 (Version 3)
Quarter: 2015Q1

REPORT INFORMATION
  Report Type: Spontaneous
  Country: JP (occurrence: JP)
  Receive Date: 20150206
  Receipt Date: 20150302
  Transmission Date: 20150721
  Serious: Yes (Hospitalization)
  Sender: FDA-Public Use
  Company Number: JP-ASTELLAS-2015JP000667

PATIENT
  Age: 95 Year
  Sex: Male

DRUGS (2)
  1. XTANDI [Suspect]
     Active Substance: ENZALUTAMIDE
     Indication: PROSTATE CANCER
     Route: 048
  2. XTANDI [Suspect]
     Active Substance: ENZALUTAMIDE
     Indication: POSTOPERATIVE CARE
     Dosage: 80 MG, TWICE DAILY, DIFFICULT DAY
     Route: 048

REACTIONS (3)
  - Product size issue [Unknown]
  - Decreased appetite [Recovered/Resolved]
  - Intentional product misuse [Unknown]
